FAERS Safety Report 10037630 (Version 1)
Quarter: 2014Q1

REPORT INFORMATION
  Report Type: Spontaneous
  Country: US (occurrence: US)
  Receive Date: 20140326
  Receipt Date: 20140326
  Transmission Date: 20141002
  Serious: No
  Sender: FDA-Public Use
  Company Number: US-PFIZER INC-2014085044

PATIENT
  Age: 71 Year
  Sex: Male
  Weight: 74.83 kg

DRUGS (2)
  1. CELEBREX [Suspect]
     Indication: SPONDYLITIS
     Dosage: 200 MG, DAILY
     Dates: start: 201402
  2. SIMVASTATIN [Concomitant]
     Indication: BLOOD CHOLESTEROL INCREASED
     Dosage: 10 MG, 3X/DAY

REACTIONS (1)
  - Blood bilirubin increased [Unknown]
